FAERS Safety Report 7573904-9 (Version None)
Quarter: 2011Q2

REPORT INFORMATION
  Report Type: 
  Country: None (occurrence: None)
  Receive Date: 20110627
  Receipt Date: 20110617
  Transmission Date: 20111010
  Serious: Yes (Hospitalization)
  Sender: FDA-Public Use
  Company Number: B0724834A

PATIENT
  Sex: Female

DRUGS (2)
  1. VENTOLIN HFA [Concomitant]
     Indication: ASTHMA
     Route: 065
  2. LAMICTAL [Suspect]
     Indication: DEPRESSION
     Dosage: 25MG PER DAY
     Route: 065
     Dates: start: 20110501, end: 20110514

REACTIONS (19)
  - INTERNATIONAL NORMALISED RATIO INCREASED [None]
  - VOMITING [None]
  - HYPERHIDROSIS [None]
  - SWELLING FACE [None]
  - NAUSEA [None]
  - RASH ERYTHEMATOUS [None]
  - RESPIRATORY ALKALOSIS [None]
  - HYPOTENSION [None]
  - LIVER DISORDER [None]
  - PYREXIA [None]
  - DIARRHOEA [None]
  - ASPARTATE AMINOTRANSFERASE INCREASED [None]
  - HYPERVENTILATION [None]
  - MYALGIA [None]
  - LISTLESS [None]
  - RASH MACULAR [None]
  - C-REACTIVE PROTEIN INCREASED [None]
  - LIP SWELLING [None]
  - LOCAL SWELLING [None]
